FAERS Safety Report 11823907 (Version 1)
Quarter: 2015Q4

REPORT INFORMATION
  Report Type: Spontaneous
  Country: US (occurrence: US)
  Receive Date: 20151210
  Receipt Date: 20151210
  Transmission Date: 20160305
  Serious: Yes (Death)
  Sender: FDA-Public Use
  Company Number: US-SA-2015SA206852

PATIENT
  Sex: Male

DRUGS (2)
  1. LANTUS [Suspect]
     Active Substance: INSULIN GLARGINE
     Indication: DIABETES MELLITUS
     Dosage: DOSE:38 AM 20 PM
     Route: 065
     Dates: end: 20151106
  2. RENVELA [Concomitant]
     Active Substance: SEVELAMER CARBONATE
     Dates: start: 2012

REACTIONS (4)
  - Drug administration error [Unknown]
  - Chronic kidney disease [Fatal]
  - Blood glucose increased [Unknown]
  - Blood glucose decreased [Unknown]

NARRATIVE: CASE EVENT DATE: 20101012
